FAERS Safety Report 6880992-1 (Version None)
Quarter: 2010Q2

REPORT INFORMATION
  Report Type: 
  Country: None (occurrence: None)
  Receive Date: 20100630
  Receipt Date: 20100413
  Transmission Date: 20101027
  Serious: No
  Sender: FDA-Public Use
  Company Number: 2010IP000041

PATIENT
  Age: 64 Year
  Sex: Female
  Weight: 57.6068 kg

DRUGS (10)
  1. BEPREVE [Suspect]
     Dosage: 1 GTT;BID;OPH
     Dates: start: 20100408, end: 20100411
  2. INFLUENZA VACCINE [Concomitant]
  3. VIVELLE-DOT [Concomitant]
  4. PROMETRIUM [Concomitant]
  5. MULTI-VIT [Concomitant]
  6. CALCIUM [Concomitant]
  7. VIT D [Concomitant]
  8. ASPIRIN [Concomitant]
  9. CLARITIN /00413701/ [Concomitant]
  10. SUDAFED /00070002/ [Concomitant]

REACTIONS (1)
  - RASH [None]
